FAERS Safety Report 5196277-8 (Version None)
Quarter: 2006Q4

REPORT INFORMATION
  Report Type: 
  Country: None (occurrence: None)
  Receive Date: 20061222
  Receipt Date: 20061212
  Transmission Date: 20070319
  Serious: Yes (Death)
  Sender: FDA-Public Use
  Company Number: 2006152807

PATIENT
  Age: 49 Year
  Sex: Female

DRUGS (1)
  1. FRAGMIN [Suspect]
     Dosage: 1000 I.U. (5000 I.U.,1 IN 12 HR), SUBCUTANEOUS
     Route: 058

REACTIONS (1)
  - PULMONARY EMBOLISM [None]
